FAERS Safety Report 24960531 (Version 1)
Quarter: 2025Q1

REPORT INFORMATION
  Report Type: Spontaneous
  Country: US (occurrence: None)
  Receive Date: 20250211
  Receipt Date: 20250211
  Transmission Date: 20250408
  Serious: Yes (Other)
  Sender: FDA-CTU
  Company Number: None

PATIENT
  Age: 83 Year
  Sex: Male
  Weight: 87.75 kg

DRUGS (23)
  1. RESTASIS [Suspect]
     Active Substance: CYCLOSPORINE
     Indication: Dry eye
     Dosage: FREQUENCY : TWICE A DAY;?
     Route: 047
     Dates: start: 20241218, end: 20250210
  2. AMLODIPINE [Concomitant]
     Active Substance: AMLODIPINE BESYLATE
  3. VASCEPA [Concomitant]
     Active Substance: ICOSAPENT ETHYL
  4. LOSARTAN [Concomitant]
     Active Substance: LOSARTAN
  5. ROSUVASTATIN [Concomitant]
     Active Substance: ROSUVASTATIN
  6. MONTELUKAST [Concomitant]
     Active Substance: MONTELUKAST
  7. FLUTICASONE [Concomitant]
     Active Substance: FLUTICASONE
  8. OMEPRAZOLE [Concomitant]
     Active Substance: OMEPRAZOLE
  9. LOW DOSE ASPIRIN [Concomitant]
     Active Substance: ASPIRIN
  10. COENZYME Q10 [Concomitant]
     Active Substance: DIETARY SUPPLEMENT\UBIDECARENONE
  11. LYCOPENE [Concomitant]
     Active Substance: LYCOPENE
  12. Ergothioneine [Concomitant]
  13. DIETARY SUPPLEMENT\RESVERATROL [Concomitant]
     Active Substance: DIETARY SUPPLEMENT\RESVERATROL
  14. NMN [Concomitant]
     Active Substance: NICOTINAMIDE RIBOTIDE\RESVERATROL
  15. Beet powder mix [Concomitant]
  16. Garlic soft gel [Concomitant]
  17. VITAMIN D3 [Concomitant]
     Active Substance: CHOLECALCIFEROL
  18. VITAMIN B12 [Concomitant]
     Active Substance: CYANOCOBALAMIN
  19. Vittamin B6 [Concomitant]
  20. FOLIC ACID [Concomitant]
     Active Substance: FOLIC ACID
  21. MAGNESIUM [Concomitant]
     Active Substance: MAGNESIUM
  22. HERBALS\TURMERIC [Concomitant]
     Active Substance: HERBALS\TURMERIC
  23. Plant based protein shake mix [Concomitant]

REACTIONS (2)
  - Eye irritation [None]
  - Drug intolerance [None]

NARRATIVE: CASE EVENT DATE: 20250128
